FAERS Safety Report 5061762-6 (Version None)
Quarter: 2006Q3

REPORT INFORMATION
  Report Type: 
  Country: None (occurrence: None)
  Receive Date: 20060726
  Receipt Date: 20060125
  Transmission Date: 20061208
  Serious: No
  Sender: FDA-Public Use
  Company Number: US-GLAXOSMITHKLINE-A0590897A

PATIENT
  Age: 78 Year
  Sex: Female

DRUGS (3)
  1. DYAZIDE [Suspect]
     Indication: HYPERTENSION
     Dosage: 1CAP PER DAY
     Route: 048
  2. ASPIRIN [Concomitant]
  3. CENTRUM SILVER [Concomitant]

REACTIONS (1)
  - MUSCLE SPASMS [None]
